FAERS Safety Report 6746364-5 (Version None)
Quarter: 2010Q2

REPORT INFORMATION
  Report Type: 
  Country: None (occurrence: None)
  Receive Date: 20100528
  Receipt Date: 20100518
  Transmission Date: 20101027
  Serious: Yes (Hospitalization)
  Sender: FDA-Public Use
  Company Number: CA-ROCHE-652470

PATIENT
  Sex: Male
  Weight: 98 kg

DRUGS (10)
  1. PEGINTERFERON ALFA-2A [Suspect]
     Dosage: LAST DOSE PRIOR TO SAE ON 13 NOV 2008.  DOSAGE FORM: INJ
     Route: 058
     Dates: start: 20080626
  2. RIBAVIRIN [Suspect]
     Dosage: DOSING AMOUNT: 600 MG AM AND 800 MG PM. LAST DOSE PRIOR TO SAE:16 NOV 2008.
     Route: 048
     Dates: start: 20080626
  3. METOPROLOL [Concomitant]
  4. LACTULOSE [Concomitant]
  5. LANSOPRAZOLE [Concomitant]
  6. METFORMIN HYDROCHLORIDE [Concomitant]
  7. SPIRONOLACTONE [Concomitant]
  8. FOLIC ACID [Concomitant]
  9. CIPRO [Concomitant]
  10. METRONIDAZOLE [Concomitant]

REACTIONS (1)
  - LOSS OF CONSCIOUSNESS [None]
